FAERS Safety Report 8813639 (Version 1)
Quarter: 2012Q4

REPORT INFORMATION
  Report Type: 
  Country: JP (occurrence: JP)
  Receive Date: 20120927
  Receipt Date: 20120927
  Transmission Date: 20130627
  Serious: Yes (Other)
  Sender: FDA-Public Use
  Company Number: JP-009507513-1107USA03062

PATIENT
  Age: 66 Year
  Sex: Female
  Weight: 48 kg

DRUGS (4)
  1. NU-LOTAN TABLET 50 [Suspect]
     Indication: HYPERTENSION
     Dosage: Daily dosage unknown
     Route: 048
     Dates: start: 2005, end: 201006
  2. ARTIST [Suspect]
     Indication: HYPERTENSION
     Dosage: Daily dosage unknown
     Route: 048
     Dates: start: 2005, end: 201006
  3. MUCOSTA [Concomitant]
     Indication: GASTRITIS
     Dosage: Daily dosage unknown
     Route: 048
  4. ALLELOCK [Concomitant]
     Indication: HYPERSENSITIVITY
     Dosage: Daily dosage unknown
     Route: 048

REACTIONS (1)
  - Dermatitis bullous [Recovering/Resolving]
